FAERS Safety Report 7687336-6 (Version None)
Quarter: 2011Q3

REPORT INFORMATION
  Report Type: 
  Country: None (occurrence: None)
  Receive Date: 20110816
  Receipt Date: 20110811
  Transmission Date: 20111222
  Serious: Yes (Other)
  Sender: FDA-Public Use
  Company Number: US-ABBOTT-11P-163-0845863-00

PATIENT
  Age: 55 Year
  Sex: Male

DRUGS (4)
  1. HUMIRA [Suspect]
  2. SYNTHROID [Concomitant]
     Indication: PRODUCT USED FOR UNKNOWN INDICATION
     Dosage: ONCE A DAY, BLUE SYNTHROID PILL
  3. HUMIRA [Suspect]
     Dates: end: 20090101
  4. HUMIRA [Suspect]
     Indication: PSORIATIC ARTHROPATHY
     Dosage: TWICE A MONTH
     Dates: start: 20060101, end: 20070101

REACTIONS (7)
  - IMMUNODEFICIENCY [None]
  - INFECTED BITES [None]
  - INFECTION [None]
  - DRUG EFFECT DECREASED [None]
  - KNEE ARTHROPLASTY [None]
  - ANIMAL BITE [None]
  - ROTATOR CUFF REPAIR [None]
